FAERS Safety Report 17054059 (Version 1)
Quarter: 2019Q4

REPORT INFORMATION
  Report Type: Spontaneous
  Country: BY (occurrence: BY)
  Receive Date: 20191120
  Receipt Date: 20191120
  Transmission Date: 20200122
  Serious: Yes (Other)
  Sender: FDA-Public Use
  Company Number: BY-PFIZER INC-2019496719

PATIENT
  Age: 28 Year
  Sex: Male
  Weight: 73 kg

DRUGS (29)
  1. LINEZOLID. [Suspect]
     Active Substance: LINEZOLID
     Dosage: 600, QD (ONCE A DAY; 7 DAYS PER WEEK)
     Route: 048
     Dates: start: 20190624, end: 20190814
  2. BEDAQUILINE [Suspect]
     Active Substance: BEDAQUILINE
     Dosage: UNK, 3 DAYS PER WEEK
     Route: 048
     Dates: start: 20190820, end: 20190917
  3. CLOFAZIMINE [Suspect]
     Active Substance: CLOFAZIMINE
     Dosage: 100; 6 DAYS PER WEEK)
     Route: 048
     Dates: start: 20190604, end: 20190624
  4. CLOFAZIMINE [Suspect]
     Active Substance: CLOFAZIMINE
     Dosage: 100; 6 DAYS PER WEEK
     Route: 048
     Dates: start: 20190820, end: 20190917
  5. IMIPENEM AND CILASTATIN [Suspect]
     Active Substance: CILASTATIN SODIUM\IMIPENEM
     Indication: TUBERCULOSIS
     Dosage: (2000; 6 DAYS PER WEEK)
     Route: 042
     Dates: start: 20190524, end: 20190724
  6. AMOXI CLAV [Suspect]
     Active Substance: AMOXICILLIN\CLAVULANATE POTASSIUM
     Dosage: 2000; 6 DAYS PER WEEK
     Route: 048
     Dates: start: 20190730, end: 20190814
  7. COTRIMOXAZOLE [Concomitant]
     Active Substance: SULFAMETHOXAZOLE\TRIMETHOPRIM
     Dosage: UNK
     Dates: start: 20190730, end: 20190814
  8. CYCLOSERINE. [Concomitant]
     Active Substance: CYCLOSERINE
     Dosage: UNK
     Dates: start: 20190604, end: 20190624
  9. DELTYBA [Suspect]
     Active Substance: DELAMANID
     Dosage: 200; 6 DAYS PER WEEK
     Route: 048
     Dates: start: 20190820, end: 20190917
  10. AMOXI CLAV [Suspect]
     Active Substance: AMOXICILLIN\CLAVULANATE POTASSIUM
     Indication: TUBERCULOSIS
     Dosage: 2000; 6 DAYS PER WEEK
     Route: 048
     Dates: start: 20190524, end: 20190724
  11. DACLATASVIR. [Concomitant]
     Active Substance: DACLATASVIR
     Indication: HEPATITIS C
     Dosage: UNK
     Dates: start: 20190624, end: 20190724
  12. SOFOSBUVIR [Concomitant]
     Active Substance: SOFOSBUVIR
     Indication: HEPATITIS C
     Dosage: UNK
     Dates: start: 20190624, end: 20190724
  13. DOLUTEGRAVIR [Concomitant]
     Active Substance: DOLUTEGRAVIR
     Dosage: UNK
     Dates: start: 20190730, end: 20190814
  14. LINEZOLID. [Suspect]
     Active Substance: LINEZOLID
     Dosage: 600; 6 DAYS PER WEEK
     Route: 048
     Dates: start: 20190604, end: 20190624
  15. DELTYBA [Suspect]
     Active Substance: DELAMANID
     Indication: TUBERCULOSIS
     Dosage: 200, QD (ONCE A DAY; DAYS PER WEEK)
     Route: 048
     Dates: start: 20190730, end: 20190814
  16. CLOFAZIMINE [Suspect]
     Active Substance: CLOFAZIMINE
     Indication: TUBERCULOSIS
     Dosage: 100 QD (ONCE A DAY; 7 DAYS PER WEEK)
     Route: 048
     Dates: start: 20190524, end: 20190604
  17. PYRIDOXINE [Concomitant]
     Active Substance: PYRIDOXINE
     Dosage: UNK
     Dates: start: 20190815, end: 20190917
  18. COTRIMOXAZOLE [Concomitant]
     Active Substance: SULFAMETHOXAZOLE\TRIMETHOPRIM
     Dosage: UNK
     Dates: start: 20190821, end: 20190917
  19. FLUCONAZOLE. [Concomitant]
     Active Substance: FLUCONAZOLE
     Dosage: UNK
     Dates: start: 20190730, end: 20190814
  20. LINEZOLID. [Suspect]
     Active Substance: LINEZOLID
     Indication: TUBERCULOSIS
     Dosage: 600, QD (ONCE A DAY; 7 DAYS PER WEEK)
     Route: 048
     Dates: start: 20190524, end: 20190604
  21. BEDAQUILINE [Suspect]
     Active Substance: BEDAQUILINE
     Indication: TUBERCULOSIS
     Dosage: 200; 3 DAYS PER WEEK
     Route: 048
     Dates: start: 20190524, end: 20190814
  22. CYCLOSERINE. [Concomitant]
     Active Substance: CYCLOSERINE
     Indication: TUBERCULOSIS
     Dosage: UNK
     Dates: start: 20190524, end: 20190604
  23. PYRIDOXINE [Concomitant]
     Active Substance: PYRIDOXINE
     Dosage: UNK
     Dates: start: 20190730, end: 20190814
  24. TENOF EM [Concomitant]
     Dosage: UNK STRENGTH: EMTRICITABINE 200/TENOFOVIR DISOPROXIL FUMARATE 300 MG
     Dates: start: 20190730, end: 20190814
  25. LINEZOLID. [Suspect]
     Active Substance: LINEZOLID
     Dosage: 600; 6 DAYS PER WEEK
     Route: 048
     Dates: start: 20190820, end: 20190917
  26. CLOFAZIMINE [Suspect]
     Active Substance: CLOFAZIMINE
     Dosage: 100, QD (ONCE A DAY; 7 DAYS PER WEEK)
     Route: 048
     Dates: start: 20190624, end: 20190814
  27. IMIPENEM AND CILASTATIN [Suspect]
     Active Substance: CILASTATIN SODIUM\IMIPENEM
     Dosage: 2000; 6 DAYS PER WEEK
     Route: 042
     Dates: start: 20190730, end: 20190814
  28. CYCLOSERINE. [Concomitant]
     Active Substance: CYCLOSERINE
     Dosage: UNK
     Dates: start: 20190624, end: 20190730
  29. MOXIFLOXACIN. [Concomitant]
     Active Substance: MOXIFLOXACIN
     Indication: TUBERCULOSIS
     Dosage: UNK
     Dates: start: 20190724, end: 20190730

REACTIONS (1)
  - Hepatotoxicity [Unknown]

NARRATIVE: CASE EVENT DATE: 20190808
